FAERS Safety Report 8812164 (Version 3)
Quarter: 2015Q1

REPORT INFORMATION
  Report Type: Report from Study
  Country: US (occurrence: US)
  Receive Date: 20120927
  Receipt Date: 20150204
  Transmission Date: 20150721
  Serious: Yes (Death)
  Sender: FDA-Public Use
  Company Number: US-ROCHE-1129392

PATIENT
  Sex: Female

DRUGS (7)
  1. TAXOL [Suspect]
     Active Substance: PACLITAXEL
     Indication: PRODUCT USED FOR UNKNOWN INDICATION
     Dosage: 80 MG/M2
     Route: 042
  2. HERCEPTIN [Suspect]
     Active Substance: TRASTUZUMAB
     Indication: BREAST CANCER FEMALE
     Dosage: LOADING DOSE
     Route: 042
     Dates: start: 19991216
  3. HERCEPTIN [Suspect]
     Active Substance: TRASTUZUMAB
     Indication: BREAST CANCER FEMALE
  4. ZANTAC [Concomitant]
     Active Substance: RANITIDINE HYDROCHLORIDE
     Route: 065
  5. BENADRYL [Concomitant]
     Active Substance: DIPHENHYDRAMINE HYDROCHLORIDE
     Route: 065
  6. HERCEPTIN [Suspect]
     Active Substance: TRASTUZUMAB
     Indication: LUNG CANCER METASTATIC
     Dosage: MAINTENANCE DOSE
     Route: 042
  7. ANZEMET [Concomitant]
     Active Substance: DOLASETRON MESYLATE
     Route: 065

REACTIONS (5)
  - Anaemia [Unknown]
  - Death [Fatal]
  - Neuropathy peripheral [Unknown]
  - Alopecia [Unknown]
  - Paraesthesia [Unknown]
